FAERS Safety Report 7688687-1 (Version None)
Quarter: 2011Q3

REPORT INFORMATION
  Report Type: 
  Country: None (occurrence: None)
  Receive Date: 20110817
  Receipt Date: 20110811
  Transmission Date: 20111222
  Serious: Yes (Hospitalization)
  Sender: FDA-Public Use
  Company Number: US-GLAXOSMITHKLINE-A0940400A

PATIENT
  Age: 53 Year
  Sex: Female
  Weight: 83.2 kg

DRUGS (2)
  1. AVANDAMET [Suspect]
     Indication: DIABETES MELLITUS
     Route: 048
     Dates: start: 20041130, end: 20060101
  2. AVANDIA [Suspect]
     Indication: DIABETES MELLITUS
     Route: 048
     Dates: start: 20020101, end: 20060101

REACTIONS (3)
  - ARTERIOSCLEROSIS CORONARY ARTERY [None]
  - ANGINA PECTORIS [None]
  - PAIN [None]
